FAERS Safety Report 24225302 (Version 1)
Quarter: 2024Q3

REPORT INFORMATION
  Report Type: Report from Study
  Country: US (occurrence: US)
  Receive Date: 20240820
  Receipt Date: 20240820
  Transmission Date: 20241016
  Serious: Yes (Other)
  Sender: SANOFI AVENTIS
  Company Number: US-SA-SAC20240816000650

PATIENT
  Age: 21 Year
  Sex: Male

DRUGS (1)
  1. DUPILUMAB [Suspect]
     Active Substance: DUPILUMAB
     Indication: Dermatitis atopic
     Dosage: 300 MG, QOW
     Route: 058
     Dates: start: 20240418, end: 2024

REACTIONS (4)
  - Cataract [Unknown]
  - Asthenopia [Unknown]
  - Vision blurred [Unknown]
  - Condition aggravated [Unknown]

NARRATIVE: CASE EVENT DATE: 20240101
